FAERS Safety Report 6354850-5 (Version None)
Quarter: 2009Q3

REPORT INFORMATION
  Report Type: 
  Country: None (occurrence: None)
  Receive Date: 20090914
  Receipt Date: 20090831
  Transmission Date: 20100115
  Serious: Yes (Hospitalization)
  Sender: FDA-Public Use
  Company Number: GB-BAYER-200931593GPV

PATIENT
  Age: 62 Year
  Sex: Female

DRUGS (5)
  1. ALEVE [Suspect]
     Indication: DRUG USE FOR UNKNOWN INDICATION
     Route: 065
     Dates: start: 20090826, end: 20090829
  2. CARBOPLATIN [Suspect]
     Indication: NEOPLASM MALIGNANT
     Route: 042
     Dates: start: 20090819
  3. ETOPOSIDE [Suspect]
     Indication: NEOPLASM MALIGNANT
     Route: 042
     Dates: start: 20090819
  4. RO4858696 (IGF-1R ANTAGONIST) [Suspect]
     Indication: NEOPLASM MALIGNANT
     Route: 042
     Dates: start: 20090819
  5. IRON [Concomitant]
     Route: 065
     Dates: start: 20070201, end: 20090829

REACTIONS (1)
  - GASTROINTESTINAL HAEMORRHAGE [None]
